FAERS Safety Report 9648455 (Version 2)
Quarter: 2014Q4

REPORT INFORMATION
  Report Type: Spontaneous
  Country: US (occurrence: None)
  Receive Date: 20131024
  Receipt Date: 20141219
  Transmission Date: 20150529
  Serious: Yes (Life-Threatening, Hospitalization)
  Sender: FDA-Public Use
  Company Number: 1224850-2013-0002

PATIENT
  Age: 79 Year
  Sex: Male

DRUGS (23)
  1. PHOSLO [Suspect]
     Active Substance: CALCIUM ACETATE
     Indication: MINERAL METABOLISM DISORDER
     Dosage: (2) 667MG TAB TID, PO
     Route: 048
  2. LOSARTAN POTASSIUM. [Concomitant]
     Active Substance: LOSARTAN POTASSIUM
  3. OXYGEN 2L [Concomitant]
  4. PERITONEAL DIALYSIS DELIVERY SYSTEM [Concomitant]
  5. DEFLEX [Concomitant]
  6. FISH OIL [Concomitant]
     Active Substance: FISH OIL
  7. ASPIRIN. [Concomitant]
     Active Substance: ASPIRIN
  8. MULTIVITAMINS [Concomitant]
     Active Substance: VITAMINS
  9. LASIX [Concomitant]
     Active Substance: FUROSEMIDE
  10. LEXAPRO [Concomitant]
     Active Substance: ESCITALOPRAM OXALATE
  11. MINOXIDIL. [Concomitant]
     Active Substance: MINOXIDIL
  12. PRAVASTATIN [Concomitant]
     Active Substance: PRAVASTATIN\PRAVASTATIN SODIUM
  13. VENTOLIN [Concomitant]
     Active Substance: ALBUTEROL SULFATE
  14. DEXTROSE. [Concomitant]
     Active Substance: DEXTROSE
  15. LEVOTHYROXINE [Concomitant]
     Active Substance: LEVOTHYROXINE
  16. CALCIUM CARBONATE. [Concomitant]
     Active Substance: CALCIUM CARBONATE
  17. PHOSLO [Concomitant]
     Active Substance: CALCIUM ACETATE
  18. PHOSLO [Suspect]
     Active Substance: CALCIUM ACETATE
     Indication: BONE DISORDER
     Dosage: (2) 667MG TAB TID, PO
     Route: 048
  19. PERITONEAL DIALYSIS CYCLER SET [Concomitant]
  20. ZOFRAN [Concomitant]
     Active Substance: ONDANSETRON HYDROCHLORIDE
  21. AMLODIPINE [Concomitant]
     Active Substance: AMLODIPINE BESYLATE
  22. COZAAR [Concomitant]
     Active Substance: LOSARTAN POTASSIUM
  23. LOPRESSOR [Concomitant]
     Active Substance: METOPROLOL TARTRATE

REACTIONS (3)
  - Cardiac arrest [None]
  - Pain in extremity [None]
  - Myocardial infarction [None]

NARRATIVE: CASE EVENT DATE: 20130727
